FAERS Safety Report 14613054 (Version 1)
Quarter: 2018Q1

REPORT INFORMATION
  Report Type: Spontaneous
  Country: US (occurrence: US)
  Receive Date: 20180308
  Receipt Date: 20180308
  Transmission Date: 20180509
  Serious: Yes (Life-Threatening)
  Sender: FDA-Public Use
  Company Number: None

PATIENT
  Age: 59 Year
  Sex: Female
  Weight: 135 kg

DRUGS (1)
  1. YERVOY [Suspect]
     Active Substance: IPILIMUMAB
     Indication: MALIGNANT MELANOMA
     Dosage: ?          QUANTITY:1 INFUSION;?
     Route: 042
     Dates: start: 20170412

REACTIONS (2)
  - Platelet count decreased [None]
  - Immune system disorder [None]

NARRATIVE: CASE EVENT DATE: 20170419
